APPROVED DRUG PRODUCT: ACETAMINOPHEN AND IBUPROFEN
Active Ingredient: ACETAMINOPHEN; IBUPROFEN
Strength: 250MG;125MG
Dosage Form/Route: TABLET;ORAL
Application: A214836 | Product #001
Applicant: L PERRIGO CO
Approved: Feb 28, 2023 | RLD: No | RS: No | Type: OTC